FAERS Safety Report 7537995-3 (Version None)
Quarter: 2011Q2

REPORT INFORMATION
  Report Type: 
  Country: None (occurrence: None)
  Receive Date: 20110609
  Receipt Date: 20110601
  Transmission Date: 20111010
  Serious: Yes (Hospitalization)
  Sender: FDA-Public Use
  Company Number: US-B.I. PHARMACEUTICALS,INC./RIDGEFIELD-2011-BP-13152BP

PATIENT
  Age: 90 Year
  Sex: Female
  Weight: 44.45 kg

DRUGS (6)
  1. PRADAXA [Suspect]
     Indication: ATRIAL FIBRILLATION
     Dosage: 300 MG
     Route: 048
     Dates: start: 20110221, end: 20110510
  2. LIPITOR [Concomitant]
     Dosage: 20 MG
     Dates: start: 20091104
  3. MONOPRIL [Concomitant]
     Dosage: 40 MG
     Dates: start: 20091104
  4. CARTIA XT [Concomitant]
     Dosage: 240 MG
     Dates: start: 20070730
  5. COREG CR [Concomitant]
     Dosage: 40 MG
     Dates: start: 20100505
  6. FOSAMAX [Concomitant]
     Dosage: 70 MG
     Dates: start: 20081205

REACTIONS (4)
  - GASTROINTESTINAL HAEMORRHAGE [None]
  - INTERNATIONAL NORMALISED RATIO INCREASED [None]
  - MALAISE [None]
  - FATIGUE [None]
